FAERS Safety Report 7852732-0 (Version None)
Quarter: 2011Q4

REPORT INFORMATION
  Report Type: 
  Country: None (occurrence: None)
  Receive Date: 20111026
  Receipt Date: 20111017
  Transmission Date: 20120403
  Serious: Yes (Death, Other)
  Sender: FDA-Public Use
  Company Number: TR-TEVA-306100ISR

PATIENT
  Age: 45 Year
  Sex: Male

DRUGS (2)
  1. CISPLATIN [Suspect]
     Indication: GASTRIC CANCER
     Dosage: 60 MG/M2;
     Route: 042
  2. CAPECITABINE [Suspect]
     Indication: GASTRIC CANCER
     Dosage: 1250 MG/M2;
     Route: 048

REACTIONS (5)
  - COLITIS ISCHAEMIC [None]
  - VASCULAR CALCIFICATION [None]
  - CARDIAC ARREST [None]
  - ARTERIAL THROMBOSIS [None]
  - ANEURYSM [None]
